FAERS Safety Report 25122362 (Version 1)
Quarter: 2025Q1

REPORT INFORMATION
  Report Type: Spontaneous
  Country: US (occurrence: US)
  Receive Date: 20250326
  Receipt Date: 20250326
  Transmission Date: 20250409
  Serious: No
  Sender: CURIUM PHARMACEUTICALS
  Company Number: US-CURIUM-2025000134

PATIENT
  Age: 68 Year
  Sex: Female

DRUGS (1)
  1. COPPER OXODOTREOTIDE CU-64 [Suspect]
     Active Substance: COPPER OXODOTREOTIDE CU-64
     Indication: Positron emission tomogram
     Route: 042
     Dates: start: 20250220, end: 20250220

REACTIONS (1)
  - Vomiting [Recovered/Resolved]

NARRATIVE: CASE EVENT DATE: 20250220
